FAERS Safety Report 11803785 (Version 1)
Quarter: 2015Q4

REPORT INFORMATION
  Report Type: Spontaneous
  Country: US (occurrence: US)
  Receive Date: 20151204
  Receipt Date: 20151204
  Transmission Date: 20160305
  Serious: No
  Sender: FDA-Public Use
  Company Number: ALCN2015US007514

PATIENT
  Age: 52 Year
  Sex: Female

DRUGS (1)
  1. ICAPS AREDS [Suspect]
     Active Substance: MINERALS\VITAMINS
     Indication: PRODUCT USED FOR UNKNOWN INDICATION
     Dosage: 1 GELCAP, BID
     Route: 048
     Dates: start: 20151126, end: 20151130

REACTIONS (2)
  - Expired product administered [Recovered/Resolved]
  - Vomiting [Recovered/Resolved]

NARRATIVE: CASE EVENT DATE: 20151126
